FAERS Safety Report 8088287 (Version 2)
Quarter: 2013Q1

REPORT INFORMATION
  Report Type: Spontaneous
  Country: US (occurrence: US)
  Receive Date: 20110812
  Receipt Date: 20130206
  Transmission Date: 20140127
  Serious: Yes (Hospitalization)
  Sender: FDA-Public Use
  Company Number: US-GLAXOSMITHKLINE-A0903562A

PATIENT
  Age: 61 Year
  Sex: Male

DRUGS (1)
  1. AVANDIA [Suspect]
     Indication: DIABETES MELLITUS
     Dosage: 4MG PER DAY
     Route: 048
     Dates: start: 20010530, end: 200711

REACTIONS (11)
  - Cardiac disorder [Not Recovered/Not Resolved]
  - Dyspnoea [Unknown]
  - Pain [Unknown]
  - Feeling abnormal [Unknown]
  - Blood pressure increased [Unknown]
  - Nausea [Unknown]
  - Fatigue [Unknown]
  - Oedema [Unknown]
  - Abdominal distension [Unknown]
  - Weight increased [Unknown]
  - Coronary artery bypass [Unknown]
